FAERS Safety Report 12068546 (Version 1)
Quarter: 2016Q1

REPORT INFORMATION
  Report Type: Spontaneous
  Country: US (occurrence: US)
  Receive Date: 20160211
  Receipt Date: 20160211
  Transmission Date: 20160526
  Serious: No
  Sender: FDA-Public Use
  Company Number: US-ALLERGAN-1519908US

PATIENT
  Age: 72 Year
  Sex: Female

DRUGS (4)
  1. BOTOX COSMETIC [Suspect]
     Active Substance: ONABOTULINUMTOXINA
     Indication: SKIN WRINKLING
     Dosage: UNK, SINGLE
     Route: 030
     Dates: start: 2014, end: 2014
  2. JUVEDERM [Concomitant]
     Active Substance: HYALURONIC ACID
     Dosage: UNK
     Dates: start: 2014, end: 2014
  3. BOTOX COSMETIC [Suspect]
     Active Substance: ONABOTULINUMTOXINA
     Indication: SKIN WRINKLING
     Dosage: 14 UNITS, SINGLE
     Route: 030
     Dates: start: 20150924, end: 20150924
  4. JUVEDERM [Concomitant]
     Active Substance: HYALURONIC ACID
     Dosage: UNK
     Dates: start: 20150924, end: 20150924

REACTIONS (3)
  - Injection site mass [Recovering/Resolving]
  - Injection site discharge [Recovering/Resolving]
  - Eyelid ptosis [Recovered/Resolved]

NARRATIVE: CASE EVENT DATE: 20150928
